FAERS Safety Report 21115153 (Version 3)
Quarter: 2022Q3

REPORT INFORMATION
  Report Type: Spontaneous
  Country: US (occurrence: US)
  Receive Date: 20220721
  Receipt Date: 20220804
  Transmission Date: 20221026
  Serious: Yes (Other)
  Sender: FDA-Public Use
  Company Number: US-PFIZER INC-202200974923

PATIENT
  Age: 49 Year
  Sex: Female

DRUGS (1)
  1. LYRICA [Suspect]
     Active Substance: PREGABALIN
     Indication: Fibromyalgia
     Dosage: 200 MG, ONE IN THE MORNING, ONE AT 4PM, AND ONE AT BEDTIME
     Dates: start: 1994

REACTIONS (6)
  - Drug dependence [Unknown]
  - Anxiety [Unknown]
  - Visual impairment [Recovered/Resolved]
  - Confusional state [Unknown]
  - Off label use [Unknown]
  - Product dispensing error [Unknown]

NARRATIVE: CASE EVENT DATE: 19940101
